FAERS Safety Report 13649903 (Version 1)
Quarter: 2017Q2

REPORT INFORMATION
  Report Type: Spontaneous
  Country: US (occurrence: US)
  Receive Date: 20170613
  Receipt Date: 20170613
  Transmission Date: 20170830
  Serious: No
  Sender: FDA-Public Use
  Company Number: None

PATIENT
  Age: 58 Year
  Sex: Female
  Weight: 75.15 kg

DRUGS (3)
  1. TYLENOL [Concomitant]
     Active Substance: ACETAMINOPHEN
  2. CLARITIN [Concomitant]
     Active Substance: LORATADINE
  3. FLONASE [Suspect]
     Active Substance: FLUTICASONE PROPIONATE
     Indication: MULTIPLE ALLERGIES
     Route: 055
     Dates: start: 20170607, end: 20170609

REACTIONS (2)
  - Anosmia [None]
  - Ageusia [None]

NARRATIVE: CASE EVENT DATE: 20170607
